FAERS Safety Report 9682548 (Version 1)
Quarter: 2013Q4

REPORT INFORMATION
  Report Type: Spontaneous
  Country: US (occurrence: US)
  Receive Date: 20131112
  Receipt Date: 20131112
  Transmission Date: 20140711
  Serious: Yes (Hospitalization)
  Sender: FDA-Public Use
  Company Number: US-SUN PHARMACEUTICAL INDUSTRIES LTD-2013SUN04995

PATIENT
  Age: 45 Year
  Sex: Male

DRUGS (3)
  1. TIAGABINE HYDROCHLORIDE TABLETS 4MG [Suspect]
     Indication: EPILEPSY
     Dosage: 4 MG PER DAY 4 MG PER DAY, TITRATED BY 4 MG EACH WEEK
     Route: 065
  2. TIAGABINE HYDROCHLORIDE TABLETS 4MG [Suspect]
     Dosage: 8 MG THREE TIMES DAILY
     Route: 065
  3. FLUOXETINE [Concomitant]
     Indication: DEPRESSION
     Dosage: 40 MG PER DAY
     Route: 065

REACTIONS (3)
  - Adjustment disorder [Recovering/Resolving]
  - Status epilepticus [Recovering/Resolving]
  - Toxic encephalopathy [Recovering/Resolving]
